FAERS Safety Report 5495838-6 (Version None)
Quarter: 2007Q4

REPORT INFORMATION
  Report Type: 
  Country: None (occurrence: None)
  Receive Date: 20071025
  Receipt Date: 20061031
  Transmission Date: 20080405
  Serious: Yes (Other)
  Sender: FDA-Public Use
  Company Number: A0625600A

PATIENT
  Age: 74 Year
  Sex: Female

DRUGS (7)
  1. ADVAIR DISKUS 100/50 [Suspect]
     Indication: ASTHMA
     Route: 055
     Dates: start: 20060501
  2. CITALOPRAM HYDROBROMIDE [Concomitant]
  3. PREDNISONE [Concomitant]
  4. LISINOPRIL [Concomitant]
  5. ALPRAZOLAM [Concomitant]
  6. THEOPHYLLINE [Concomitant]
  7. PEPCID [Concomitant]

REACTIONS (1)
  - ASTHMA [None]
